FAERS Safety Report 14129021 (Version 3)
Quarter: 2017Q4

REPORT INFORMATION
  Report Type: Report from Study
  Country: JP (occurrence: JP)
  Receive Date: 20171026
  Receipt Date: 20171122
  Transmission Date: 20180321
  Serious: Yes (Hospitalization)
  Sender: FDA-Public Use
  Company Number: JP-PFIZER INC-2017458613

PATIENT
  Age: 59 Year
  Sex: Female
  Weight: 88 kg

DRUGS (46)
  1. MUCOSOLVAN [Concomitant]
     Active Substance: AMBROXOL HYDROCHLORIDE
     Route: 048
  2. LASIX [Concomitant]
     Active Substance: FUROSEMIDE
     Route: 048
  3. MOHRUS [Concomitant]
     Active Substance: KETOPROFEN
     Dosage: UNK
     Dates: start: 20170209
  4. METHOTREXATE SODIUM. [Concomitant]
     Active Substance: METHOTREXATE SODIUM
     Indication: RHEUMATOID ARTHRITIS
     Dosage: 8 MG, WEEKLY
     Dates: end: 20170220
  5. TRANSAMIN [Concomitant]
     Active Substance: TRANEXAMIC ACID
     Dosage: UNK
     Route: 048
     Dates: start: 20161102
  6. PREDNISOLONE. [Concomitant]
     Active Substance: PREDNISOLONE
     Dosage: 8 MG, DAILY
     Dates: start: 20170607, end: 20171017
  7. FOLIAMIN [Concomitant]
     Active Substance: FOLIC ACID
     Route: 048
  8. ISODIN /00040901/ [Concomitant]
     Dosage: UNK
     Dates: start: 20170209
  9. ALINAMIN F /00257801/ [Concomitant]
     Dosage: UNK
     Route: 048
     Dates: start: 20170111
  10. LAMISIL [Concomitant]
     Active Substance: TERBINAFINE HYDROCHLORIDE
     Dosage: UNK
     Dates: start: 20170302
  11. SLOW-K [Concomitant]
     Active Substance: POTASSIUM CHLORIDE
     Dosage: UNK
     Route: 048
     Dates: start: 20170623
  12. XELJANZ [Suspect]
     Active Substance: TOFACITINIB CITRATE
     Dosage: 5 MG, 2X/DAY
     Route: 048
     Dates: start: 20161005, end: 20170220
  13. PREDNISOLONE. [Concomitant]
     Active Substance: PREDNISOLONE
     Dosage: 6 MG, DAILY
     Dates: start: 20160726, end: 20160830
  14. PREDNISOLONE. [Concomitant]
     Active Substance: PREDNISOLONE
     Dosage: 10 MG, DAILY
     Dates: start: 20170517, end: 20170606
  15. TRAMACET [Concomitant]
     Active Substance: ACETAMINOPHEN\TRAMADOL
     Route: 048
  16. ISONARIF [Concomitant]
     Active Substance: ISONIAZID\RIFAMPIN
     Dosage: UNK
     Route: 048
     Dates: start: 20170315, end: 20171017
  17. PL [Concomitant]
     Active Substance: ACETAMINOPHEN\CAFFEINE\PROMETHAZINE\SALICYLAMIDE
     Dosage: UNK
     Route: 048
     Dates: start: 20161021
  18. EDIROL [Concomitant]
     Active Substance: ELDECALCITOL
     Route: 048
  19. AMITIZA [Concomitant]
     Active Substance: LUBIPROSTONE
     Route: 048
  20. CODEINE PHOSPHATE [Concomitant]
     Active Substance: CODEINE PHOSPHATE
     Dosage: UNK
     Route: 048
     Dates: start: 20170118
  21. BEZATOL [Concomitant]
     Active Substance: BEZAFIBRATE
     Dosage: UNK
     Dates: start: 20170315
  22. XELJANZ [Suspect]
     Active Substance: TOFACITINIB CITRATE
     Indication: RHEUMATOID ARTHRITIS
     Dosage: 5 MG, 1X/DAY
     Route: 048
     Dates: start: 20160920, end: 20161004
  23. PREDNISOLONE. [Concomitant]
     Active Substance: PREDNISOLONE
     Dosage: 7 MG, DAILY
     Dates: end: 20160725
  24. PREDNISOLONE. [Concomitant]
     Active Substance: PREDNISOLONE
     Dosage: 4 MG, DAILY
     Dates: start: 20170306, end: 20170516
  25. ONETRAM [Concomitant]
     Active Substance: TRAMADOL HYDROCHLORIDE
     Dosage: UNK
     Route: 048
     Dates: start: 20161201
  26. FLAVITAN [Concomitant]
     Active Substance: FLAVIN ADENINE DINUCLEOTIDE
     Dosage: UNK
     Route: 048
     Dates: start: 20170209
  27. DESPA KOWA SHINYAKU [Concomitant]
     Dosage: UNK
     Route: 061
     Dates: start: 20170209
  28. XELJANZ [Suspect]
     Active Substance: TOFACITINIB CITRATE
     Dosage: 5 MG, 1X/DAY
     Route: 048
     Dates: start: 20170306, end: 20171017
  29. PREDNISOLONE. [Concomitant]
     Active Substance: PREDNISOLONE
     Dosage: 5 MG, DAILY
     Dates: start: 20160831, end: 20161228
  30. FORXIGA [Concomitant]
     Active Substance: DAPAGLIFLOZIN
     Route: 048
  31. TAKECAB [Concomitant]
     Active Substance: VONOPRAZAN FUMURATE
     Route: 048
  32. CRESTOR [Concomitant]
     Active Substance: ROSUVASTATIN CALCIUM
     Route: 048
  33. RIVOTRIL [Concomitant]
     Active Substance: CLONAZEPAM
     Route: 048
  34. CLARIS [Concomitant]
     Active Substance: SULFACETAMIDE SODIUM\SULFUR
     Dosage: UNK
     Route: 048
     Dates: start: 20161005
  35. ISONARIF [Concomitant]
     Active Substance: ISONIAZID\RIFAMPIN
     Indication: ANTIBIOTIC PROPHYLAXIS
     Dosage: UNK
     Route: 048
     Dates: end: 20161130
  36. CEFADOL /00483102/ [Concomitant]
     Dosage: UNK
     Route: 048
     Dates: start: 20161021
  37. BISOLVON [Concomitant]
     Active Substance: BROMHEXINE HYDROCHLORIDE
     Dosage: UNK
     Route: 048
     Dates: start: 20161021
  38. SAMSCA [Concomitant]
     Active Substance: TOLVAPTAN
     Dosage: UNK
     Route: 048
     Dates: start: 20170623
  39. PREDNISOLONE. [Concomitant]
     Active Substance: PREDNISOLONE
     Dosage: 4 MG, DAILY
     Dates: start: 20161229, end: 20170220
  40. VITAMINS NOS [Concomitant]
     Active Substance: VITAMINS
     Route: 048
  41. CELECOX [Concomitant]
     Active Substance: CELECOXIB
     Route: 048
  42. TRAJENTA [Concomitant]
     Active Substance: LINAGLIPTIN
     Route: 048
  43. MERISLON [Concomitant]
     Active Substance: BETAHISTINE MESILATE
     Dosage: UNK
     Route: 048
     Dates: start: 20161021
  44. ASTOMIN /00426502/ [Concomitant]
     Active Substance: DIMEMORFAN PHOSPHATE
     Dosage: UNK
     Route: 048
     Dates: start: 20161021
  45. NORSPAN [Concomitant]
     Active Substance: BUPRENORPHINE
     Dosage: TAPE
     Dates: start: 20170111
  46. AZUNOL /00317302/ [Concomitant]
     Dosage: UNK
     Dates: start: 20170215

REACTIONS (2)
  - Calculus urinary [Unknown]
  - Pyrexia [Recovering/Resolving]

NARRATIVE: CASE EVENT DATE: 20170220
